FAERS Safety Report 18316261 (Version 1)
Quarter: 2020Q3

REPORT INFORMATION
  Report Type: Spontaneous
  Country: US (occurrence: US)
  Receive Date: 20200927
  Receipt Date: 20200927
  Transmission Date: 20201103
  Serious: Yes (Other)
  Sender: FDA-Public Use
  Company Number: US-ASTRAZENECA-2020SF21939

PATIENT
  Sex: Female

DRUGS (4)
  1. FASLODEX [Suspect]
     Active Substance: FULVESTRANT
     Route: 030
     Dates: start: 201306
  2. AFINITOR [Concomitant]
     Active Substance: EVEROLIMUS
     Route: 065
  3. ANASTROZOLE. [Suspect]
     Active Substance: ANASTROZOLE
     Route: 048
  4. AROMASIN [Suspect]
     Active Substance: EXEMESTANE
     Dosage: 25.0MG UNKNOWN
     Route: 065

REACTIONS (2)
  - Metastases to bone [Unknown]
  - Tumour marker increased [Unknown]
